FAERS Safety Report 5931392-X (Version None)
Quarter: 2008Q4

REPORT INFORMATION
  Report Type: 
  Country: None (occurrence: None)
  Receive Date: 20081009
  Receipt Date: 20080630
  Transmission Date: 20090506
  Serious: Yes (Hospitalization, Disabling)
  Sender: FDA-Public Use
  Company Number: PHEH2008US05142

PATIENT
  Age: 56 Year
  Sex: Male
  Weight: 77.1 kg

DRUGS (1)
  1. ZOMETA [Suspect]
     Indication: RENAL CANCER METASTATIC
     Dosage: 4MG Q MONTH, INTRAVENOUS
     Route: 042

REACTIONS (3)
  - BONE DISORDER [None]
  - INFECTION [None]
  - PAIN [None]
